APPROVED DRUG PRODUCT: DICLOFENAC SODIUM
Active Ingredient: DICLOFENAC SODIUM
Strength: 1.5%
Dosage Form/Route: SOLUTION;TOPICAL
Application: A206715 | Product #001
Applicant: RISING PHARMA HOLDINGS INC
Approved: Aug 7, 2017 | RLD: No | RS: No | Type: DISCN